FAERS Safety Report 18300384 (Version 1)
Quarter: 2020Q3

REPORT INFORMATION
  Report Type: Spontaneous
  Country: US (occurrence: US)
  Receive Date: 20200923
  Receipt Date: 20200923
  Transmission Date: 20201103
  Serious: No
  Sender: FDA-Public Use
  Company Number: US-SA-2020SA260529

PATIENT

DRUGS (3)
  1. RITUXAN [Concomitant]
     Active Substance: RITUXIMAB
  2. OCREVUS [Concomitant]
     Active Substance: OCRELIZUMAB
  3. AUBAGIO [Suspect]
     Active Substance: TERIFLUNOMIDE
     Indication: RELAPSING MULTIPLE SCLEROSIS
     Dosage: UNK
     Dates: start: 20200430

REACTIONS (2)
  - Paraesthesia [Not Recovered/Not Resolved]
  - Feeling of body temperature change [Not Recovered/Not Resolved]

NARRATIVE: CASE EVENT DATE: 202007
